FAERS Safety Report 12561855 (Version 2)
Quarter: 2016Q3

REPORT INFORMATION
  Report Type: Spontaneous
  Country: IT (occurrence: IT)
  Receive Date: 20160715
  Receipt Date: 20160811
  Transmission Date: 20161109
  Serious: Yes (Other)
  Sender: FDA-Public Use
  Company Number: IT-BRISTOL-MYERS SQUIBB COMPANY-BMS-2016-055790

PATIENT
  Age: 53 Year
  Sex: Female

DRUGS (8)
  1. ATAZANAVIR SULFATE [Suspect]
     Active Substance: ATAZANAVIR SULFATE
     Dosage: 200 MG, QD
     Route: 065
     Dates: start: 201507
  2. RITONAVIR. [Suspect]
     Active Substance: RITONAVIR
     Indication: HEPATITIS C
     Dosage: 100 MG, QD
     Route: 065
     Dates: start: 2009, end: 201507
  3. RIBAVIRIN. [Suspect]
     Active Substance: RIBAVIRIN
     Indication: HEPATITIS C
     Dosage: UNK
     Route: 065
     Dates: start: 20150701
  4. DASABUVIR SODIUM MONOHYDRATE [Suspect]
     Active Substance: DASABUVIR SODIUM MONOHYDRATE
     Indication: HEPATITIS C
     Dosage: 250 MG, BID
     Route: 065
     Dates: start: 20150701
  5. PARITAPREVIR [Suspect]
     Active Substance: PARITAPREVIR
     Indication: HEPATITIS C
     Dosage: 150 MG, QD
     Route: 065
     Dates: start: 20150701
  6. RALTEGRAVIR. [Suspect]
     Active Substance: RALTEGRAVIR
     Indication: HIV INFECTION
     Dosage: 200 MG, BID
     Route: 065
     Dates: start: 2009
  7. OMBITASVIR [Suspect]
     Active Substance: OMBITASVIR
     Indication: HEPATITIS C
     Dosage: 25 MG, QD
     Route: 048
     Dates: start: 20150701
  8. ATAZANAVIR SULFATE [Suspect]
     Active Substance: ATAZANAVIR SULFATE
     Indication: HIV INFECTION
     Dosage: 300 MG, QD
     Route: 065
     Dates: start: 2009

REACTIONS (3)
  - Drug interaction [Recovered/Resolved]
  - Off label use [Unknown]
  - Hyperbilirubinaemia [Recovered/Resolved]
